FAERS Safety Report 13795038 (Version 1)
Quarter: 2017Q3

REPORT INFORMATION
  Report Type: Spontaneous
  Country: GB (occurrence: GB)
  Receive Date: 20170726
  Receipt Date: 20170726
  Transmission Date: 20171127
  Serious: Yes (Life-Threatening)
  Sender: FDA-Public Use
  Company Number: GB-TEVA-788657ACC

PATIENT
  Age: 8 Decade
  Sex: Female

DRUGS (1)
  1. TRIMETHOPRIM. [Suspect]
     Active Substance: TRIMETHOPRIM
     Indication: URINARY TRACT INFECTION
     Route: 048

REACTIONS (2)
  - Mental impairment [Unknown]
  - Hyponatraemia [Unknown]
